FAERS Safety Report 9513018 (Version 1)
Quarter: 2013Q3

REPORT INFORMATION
  Report Type: Spontaneous
  Country: US (occurrence: US)
  Receive Date: 20130910
  Receipt Date: 20130910
  Transmission Date: 20140515
  Serious: No
  Sender: FDA-Public Use
  Company Number: US-PFIZER INC-2013256381

PATIENT
  Sex: Female

DRUGS (1)
  1. ESTRING [Suspect]
     Indication: STRESS URINARY INCONTINENCE
     Dosage: 2 MG, UNK
     Route: 067

REACTIONS (5)
  - Product quality issue [Unknown]
  - Pain [Unknown]
  - Menstrual disorder [Unknown]
  - Skin lesion [Recovered/Resolved]
  - Excoriation [Recovered/Resolved]
